FAERS Safety Report 8891094 (Version 1)
Quarter: 2012Q4

REPORT INFORMATION
  Report Type: 
  Country: US (occurrence: US)
  Receive Date: 20121107
  Receipt Date: 20121107
  Transmission Date: 20130627
  Serious: Yes (Hospitalization)
  Sender: FDA-Public Use
  Company Number: US-PFIZER INC-2012276286

PATIENT
  Age: 65 Year
  Sex: Female
  Weight: 75.74 kg

DRUGS (1)
  1. LYRICA [Suspect]
     Indication: FIBROMYALGIA
     Dosage: 50 mg, 2x/day
     Route: 048

REACTIONS (2)
  - Hysterectomy [Unknown]
  - Blood potassium decreased [Unknown]
